FAERS Safety Report 6139180-9 (Version None)
Quarter: 2009Q2

REPORT INFORMATION
  Report Type: 
  Country: None (occurrence: None)
  Receive Date: 20090401
  Receipt Date: 20090320
  Transmission Date: 20091009
  Serious: Yes (Other)
  Sender: FDA-Public Use
  Company Number: US-PFIZER INC-2009186977

PATIENT
  Sex: Female
  Weight: 52.154 kg

DRUGS (3)
  1. ESTRING [Suspect]
     Indication: VULVOVAGINAL DRYNESS
     Route: 067
     Dates: start: 20090101, end: 20090101
  2. ESTRING [Suspect]
     Indication: OESTROGEN REPLACEMENT THERAPY
  3. CALCIUM CARBONATE [Concomitant]
     Dosage: UNK

REACTIONS (9)
  - ABDOMINAL ADHESIONS [None]
  - FEELING ABNORMAL [None]
  - HEART RATE DECREASED [None]
  - HYPERHIDROSIS [None]
  - HYPOTENSION [None]
  - MEDIAL TIBIAL STRESS SYNDROME [None]
  - MUSCULOSKELETAL DISCOMFORT [None]
  - PAIN [None]
  - SYNCOPE [None]
